FAERS Safety Report 10488712 (Version 3)
Quarter: 2014Q4

REPORT INFORMATION
  Report Type: Spontaneous
  Country: PL (occurrence: PL)
  Receive Date: 20141002
  Receipt Date: 20141020
  Transmission Date: 20150528
  Serious: Yes (Other)
  Sender: FDA-Public Use
  Company Number: PL-AMGEN-POLSP2014074505

PATIENT
  Age: 78 Year
  Sex: Female
  Weight: 86 kg

DRUGS (1)
  1. VECTIBIX [Suspect]
     Active Substance: PANITUMUMAB
     Indication: COLORECTAL CANCER
     Dosage: 6 MG/KG, EVERY 14 DAYS
     Route: 042
     Dates: start: 201409

REACTIONS (3)
  - Gastrointestinal haemorrhage [Recovered/Resolved]
  - Stoma site haemorrhage [Unknown]
  - Oral disorder [Unknown]

NARRATIVE: CASE EVENT DATE: 201409
